FAERS Safety Report 4312495-2 (Version None)
Quarter: 2004Q1

REPORT INFORMATION
  Report Type: 
  Country: None (occurrence: None)
  Receive Date: 20040302
  Receipt Date: 20031222
  Transmission Date: 20041129
  Serious: No
  Sender: FDA-Public Use
  Company Number: 701047

PATIENT
  Age: 66 Year
  Sex: Female
  Weight: 72.5755 kg

DRUGS (4)
  1. AMEVIVE [Suspect]
     Indication: PSORIASIS
     Dosage: 7.5 MG QW IV
     Dates: start: 20030609, end: 20030818
  2. ATARAX [Concomitant]
  3. PROTOPIC [Concomitant]
  4. CLOBETASOL PROPIONATE [Concomitant]

REACTIONS (8)
  - CD4 LYMPHOCYTES [None]
  - CHILLS [None]
  - ERYTHEMA [None]
  - FEELING COLD [None]
  - PAIN [None]
  - PAIN OF SKIN [None]
  - PSORIASIS [None]
  - STAPHYLOCOCCAL INFECTION [None]
